FAERS Safety Report 16173538 (Version 1)
Quarter: 2019Q2

REPORT INFORMATION
  Report Type: Spontaneous
  Country: US (occurrence: US)
  Receive Date: 20190408
  Receipt Date: 20190408
  Transmission Date: 20190711
  Serious: Yes (Hospitalization)
  Sender: FDA-Public Use
  Company Number: None

PATIENT
  Age: 81 Year
  Sex: Female

DRUGS (5)
  1. TADALAFIL. [Suspect]
     Active Substance: TADALAFIL
     Indication: PRODUCT USED FOR UNKNOWN INDICATION
     Route: 048
  2. SIMVASTATIN. [Concomitant]
     Active Substance: SIMVASTATIN
     Dates: start: 20190114
  3. ATENOLOL. [Concomitant]
     Active Substance: ATENOLOL
     Dates: start: 20190114
  4. ROPINIROLE. [Concomitant]
     Active Substance: ROPINIROLE
     Dates: start: 20190308
  5. PREDNISONE. [Concomitant]
     Active Substance: PREDNISONE
     Dates: start: 20190323

REACTIONS (1)
  - Pneumonia [None]

NARRATIVE: CASE EVENT DATE: 20190317
